FAERS Safety Report 8739202 (Version 2)
Quarter: 2013Q1

REPORT INFORMATION
  Report Type: Spontaneous
  Country: US (occurrence: US)
  Receive Date: 20120823
  Receipt Date: 20130115
  Transmission Date: 20140127
  Serious: Yes (Other)
  Sender: FDA-Public Use
  Company Number: US-INCYTE CORPORATION-2012IN001565

PATIENT
  Age: 52 None
  Sex: Female

DRUGS (13)
  1. JAKAFI [Suspect]
     Indication: MYELOFIBROSIS
     Dosage: 10 MG, BID
     Route: 048
     Dates: start: 20120625, end: 20120708
  2. JAKAFI [Suspect]
     Dosage: 5 MG, QD
     Route: 048
     Dates: start: 20120709, end: 20120805
  3. JAKAFI [Suspect]
     Dosage: 5 MG, BID
     Route: 048
     Dates: start: 20120806, end: 20120815
  4. WARFARIN [Concomitant]
  5. SPIRONOLACTONE [Concomitant]
     Dosage: 100 MG, QD
  6. LASIX [Concomitant]
     Dosage: 80 MG, QD
  7. BABY ASPIRIN [Concomitant]
     Dosage: 162 MG, QD
  8. ULORIC [Concomitant]
     Dosage: 80 MG, QD
  9. COLCHICINE [Concomitant]
     Indication: GOUT
     Dosage: 0.6 MG, PRN
  10. FOLIC ACID [Concomitant]
     Dosage: 0.8 MG, QD
  11. VITAMIN D2 [Concomitant]
     Dosage: 1000 UT, 3-4X QW
  12. IBUPROFEN W/PARACETAMOL [Concomitant]
     Indication: MIGRAINE
     Dosage: 500/200 MG, PRN
  13. ACETAMINOPHEN [Concomitant]

REACTIONS (14)
  - Hepatic function abnormal [Recovered/Resolved]
  - Hyperbilirubinaemia [Recovered/Resolved]
  - Aspartate aminotransferase increased [Recovered/Resolved]
  - Alanine aminotransferase increased [Recovered/Resolved]
  - Jaundice [Recovered/Resolved]
  - Anaemia [Recovered/Resolved]
  - Chromaturia [None]
  - Contusion [Recovered/Resolved]
  - Dizziness [None]
  - Insomnia [None]
  - Therapy cessation [None]
  - Splenomegaly [None]
  - White blood cell count decreased [None]
  - Platelet count decreased [None]
